FAERS Safety Report 8764539 (Version 3)
Quarter: 2012Q4

REPORT INFORMATION
  Report Type: 
  Country: JP (occurrence: JP)
  Receive Date: 20120831
  Receipt Date: 20120920
  Transmission Date: 20130627
  Serious: Yes (Death)
  Sender: FDA-Public Use
  Company Number: JP-BAXTER-2012BAX015643

PATIENT
  Age: 74 Year
  Sex: Male

DRUGS (5)
  1. HOLOXAN FOR INJECTION 1G/25ML [Suspect]
     Indication: MALIGNANT SOFT TISSUE NEOPLASM
     Route: 041
     Dates: start: 20120522, end: 20120525
  2. HOLOXAN FOR INJECTION 1G/25ML [Suspect]
     Route: 041
     Dates: start: 20120619, end: 20120622
  3. HOLOXAN FOR INJECTION 1G/25ML [Suspect]
     Route: 041
     Dates: start: 20120717, end: 20120720
  4. LIPITOR [Concomitant]
     Indication: HYPERLIPIDAEMIA
     Route: 048
     Dates: start: 20120713
  5. CRAVIT [Concomitant]
     Indication: INFECTION PROPHYLAXIS
     Route: 048
     Dates: start: 20120707, end: 20120712

REACTIONS (1)
  - Interstitial lung disease [Fatal]
